FAERS Safety Report 11254714 (Version 4)
Quarter: 2016Q1

REPORT INFORMATION
  Report Type: Report from Study
  Country: JP (occurrence: JP)
  Receive Date: 20150709
  Receipt Date: 20160225
  Transmission Date: 20160525
  Serious: Yes (Life-Threatening, Hospitalization)
  Sender: FDA-Public Use
  Company Number: JP-PFIZER INC-2015221092

PATIENT
  Age: 61 Year
  Sex: Female
  Weight: 47 kg

DRUGS (3)
  1. NORVASC [Concomitant]
     Active Substance: AMLODIPINE BESYLATE
     Dosage: 5 MG, 1X/DAY
     Route: 048
  2. XALKORI [Suspect]
     Active Substance: CRIZOTINIB
     Indication: NON-SMALL CELL LUNG CANCER
     Dosage: 250 MG, 2X/DAY
     Route: 048
     Dates: start: 20130508, end: 20130517
  3. XALKORI [Suspect]
     Active Substance: CRIZOTINIB
     Dosage: 250 MG, 1X/DAY
     Route: 048
     Dates: start: 20130529, end: 20130603

REACTIONS (3)
  - Neutropenia [Recovered/Resolved]
  - Hepatic function abnormal [Recovered/Resolved]
  - Leukopenia [Recovered/Resolved]

NARRATIVE: CASE EVENT DATE: 20130516
